FAERS Safety Report 5582949-X (Version None)
Quarter: 2007Q4

REPORT INFORMATION
  Report Type: 
  Country: None (occurrence: None)
  Receive Date: 20071231
  Receipt Date: 20071217
  Transmission Date: 20080405
  Serious: Yes (Hospitalization)
  Sender: FDA-Public Use
  Company Number: 02100-EUR-07-0186

PATIENT
  Age: 56 Year
  Sex: Female

DRUGS (7)
  1. CILOSTAZOL [Suspect]
     Indication: INTERMITTENT CLAUDICATION
     Dosage: 200 MG ORAL
     Route: 048
     Dates: start: 20070310
  2. PENTAERITHRITYL TETRANITRATE [Concomitant]
  3. PROCORALAN [Concomitant]
  4. PRETERAX [Concomitant]
  5. PANTOPRAZOLE SODIUM [Concomitant]
  6. VALORON N RETARD [Concomitant]
  7. ACETYLSALICYLIC ACID SRT [Concomitant]

REACTIONS (1)
  - VASCULAR GRAFT OCCLUSION [None]
